FAERS Safety Report 11742557 (Version 2)
Quarter: 2016Q1

REPORT INFORMATION
  Report Type: Spontaneous
  Country: US (occurrence: US)
  Receive Date: 20151116
  Receipt Date: 20160223
  Transmission Date: 20160525
  Serious: No
  Sender: FDA-Public Use
  Company Number: US-ACTELION PHARMACEUTICALS US, INC.-A-NJ2015-118048

PATIENT
  Age: 73 Year
  Sex: Female

DRUGS (1)
  1. TRACLEER [Suspect]
     Active Substance: BOSENTAN
     Indication: PULMONARY ARTERIAL HYPERTENSION
     Dosage: UNK
     Route: 048

REACTIONS (8)
  - Gastrooesophageal reflux disease [Unknown]
  - Hypokinesia [Unknown]
  - Sleep disorder [Unknown]
  - Arthritis [Unknown]
  - Asthenia [Unknown]
  - Drug tolerance [Unknown]
  - Diarrhoea [Recovered/Resolved]
  - Dyspnoea [Unknown]
